FAERS Safety Report 5692951-5 (Version None)
Quarter: 2008Q2

REPORT INFORMATION
  Report Type: 
  Country: None (occurrence: None)
  Receive Date: 20080403
  Receipt Date: 20080331
  Transmission Date: 20081010
  Serious: Yes (Hospitalization)
  Sender: FDA-Public Use
  Company Number: JP-SP-2008-00944

PATIENT
  Age: 46 Year
  Sex: Male

DRUGS (2)
  1. IMMUCYST [Suspect]
     Indication: BLADDER CANCER
     Route: 043
     Dates: start: 20070116, end: 20070227
  2. ISONIAZID [Concomitant]
     Dates: start: 20070116, end: 20070227

REACTIONS (1)
  - CYSTITIS [None]
